FAERS Safety Report 24814693 (Version 1)
Quarter: 2025Q1

REPORT INFORMATION
  Report Type: Spontaneous
  Country: US (occurrence: US)
  Receive Date: 20250107
  Receipt Date: 20250107
  Transmission Date: 20250409
  Serious: Yes (Life-Threatening, Other)
  Sender: VI-JON LABORATORIES
  Company Number: US-Vi-Jon Inc.-2168532

PATIENT
  Sex: Male

DRUGS (1)
  1. MAGNESIUM CITRATE LEMON [Suspect]
     Active Substance: MAGNESIUM CITRATE
     Indication: Diarrhoea

REACTIONS (1)
  - Diarrhoea [Unknown]
